FAERS Safety Report 6937568-7 (Version None)
Quarter: 2010Q3

REPORT INFORMATION
  Report Type: 
  Country: None (occurrence: None)
  Receive Date: 20100823
  Receipt Date: 20100810
  Transmission Date: 20110219
  Serious: No
  Sender: FDA-Public Use
  Company Number: US-ELI_LILLY_AND_COMPANY-US201006007284

PATIENT
  Sex: Female

DRUGS (1)
  1. FORTEO [Suspect]
     Indication: BONE DENSITY ABNORMAL
     Dosage: 20 UG, DAILY (1/D)
     Dates: start: 20100106

REACTIONS (1)
  - NO ADVERSE EVENT [None]
